FAERS Safety Report 13913488 (Version 1)
Quarter: 2017Q3

REPORT INFORMATION
  Report Type: Spontaneous
  Country: US (occurrence: US)
  Receive Date: 20170828
  Receipt Date: 20170828
  Transmission Date: 20171127
  Serious: No
  Sender: FDA-Public Use
  Company Number: US-ROCHE-1132792

PATIENT
  Sex: Female

DRUGS (3)
  1. NUTROPIN [Suspect]
     Active Substance: SOMATROPIN
     Indication: HYPOPITUITARISM
     Route: 058
  2. NUTROPIN [Suspect]
     Active Substance: SOMATROPIN
     Dosage: 8 UNITS DAILY
     Route: 058
  3. PRAVADIOL [Concomitant]
     Route: 065

REACTIONS (2)
  - Hypercholesterolaemia [Unknown]
  - Limb discomfort [Unknown]
